FAERS Safety Report 6031744-6 (Version None)
Quarter: 2008Q4

REPORT INFORMATION
  Report Type: 
  Country: None (occurrence: None)
  Receive Date: 20081224
  Receipt Date: 20081014
  Transmission Date: 20090506
  Serious: No
  Sender: FDA-Public Use
  Company Number: 2008PV036925

PATIENT
  Sex: Female
  Weight: 83.9154 kg

DRUGS (14)
  1. SYMLIN [Suspect]
     Indication: TYPE 2 DIABETES MELLITUS
     Dosage: 120 MCG;TID;SC;SC;30 MCG; SC
     Route: 058
     Dates: end: 20080601
  2. SYMLIN [Suspect]
     Indication: TYPE 2 DIABETES MELLITUS
     Dosage: 120 MCG;TID;SC;SC;30 MCG; SC
     Route: 058
     Dates: start: 20070101
  3. SYMLIN [Suspect]
     Indication: TYPE 2 DIABETES MELLITUS
     Dosage: 120 MCG;TID;SC;SC;30 MCG; SC
     Route: 058
     Dates: start: 20080601
  4. NEXIUM [Suspect]
     Dosage: 10 MG;QD;PO
     Route: 048
  5. METFORMIN HCL [Concomitant]
  6. LANTUS [Concomitant]
  7. TOPROL-XL [Concomitant]
  8. DIOVAN [Concomitant]
  9. ASPIRIN [Concomitant]
  10. FUROSEMIDE [Concomitant]
  11. KLOR-CON [Concomitant]
  12. ZETIA [Concomitant]
  13. PLAQUENIL [Concomitant]
  14. STERIOD SHOTS [Concomitant]

REACTIONS (3)
  - BLOOD GLUCOSE DECREASED [None]
  - BLOOD GLUCOSE INCREASED [None]
  - NAUSEA [None]
